FAERS Safety Report 13748544 (Version 5)
Quarter: 2018Q4

REPORT INFORMATION
  Report Type: Spontaneous
  Country: FR (occurrence: FR)
  Receive Date: 20170713
  Receipt Date: 20181217
  Transmission Date: 20190204
  Serious: Yes (Hospitalization, Other)
  Sender: FDA-Public Use
  Company Number: PHHY2017FR070254

PATIENT
  Age: 43 Year
  Sex: Male

DRUGS (47)
  1. SANDIMMUN [Suspect]
     Active Substance: CYCLOSPORINE
     Indication: PROPHYLAXIS AGAINST TRANSPLANT REJECTION
     Dosage: 2 DF, QD
     Route: 048
     Dates: start: 20170329
  2. PARACETAMOL [Suspect]
     Active Substance: ACETAMINOPHEN
     Indication: PYREXIA
     Dosage: 3 DF, QD (3 G QD)
     Route: 048
     Dates: start: 2017
  3. DITROPAN [Suspect]
     Active Substance: OXYBUTYNIN CHLORIDE
     Indication: PRODUCT USED FOR UNKNOWN INDICATION
     Dosage: 3 DF, QD
     Route: 048
     Dates: start: 20170418, end: 20170509
  4. ACUPAN [Suspect]
     Active Substance: NEFOPAM HYDROCHLORIDE
     Indication: PAIN
     Dosage: 20 MG, Q6H
     Route: 042
     Dates: start: 2017
  5. TIORFAN [Suspect]
     Active Substance: RACECADOTRIL
     Indication: DIARRHOEA
     Dosage: 100 MG, TID
     Route: 048
     Dates: start: 2017, end: 2017
  6. TIORFAN [Suspect]
     Active Substance: RACECADOTRIL
     Dosage: 600 MG, QD
     Route: 048
     Dates: start: 2017
  7. URSOLVAN [Suspect]
     Active Substance: URSODIOL
     Indication: PRODUCT USED FOR UNKNOWN INDICATION
     Dosage: 200 MG, UNK (EACH TUESDAY)
     Route: 048
     Dates: start: 20170331
  8. WELLVONE [Concomitant]
     Active Substance: ATOVAQUONE
     Indication: PRODUCT USED FOR UNKNOWN INDICATION
     Dosage: UNK
     Route: 065
  9. PARACETAMOL [Suspect]
     Active Substance: ACETAMINOPHEN
     Indication: PAIN
  10. EUPANTOL [Suspect]
     Active Substance: PANTOPRAZOLE SODIUM
     Indication: GASTROOESOPHAGEAL REFLUX DISEASE
     Dosage: 40 MG, QD
     Route: 042
     Dates: start: 2017
  11. SPASFON (PHLOROGLUCINOL;TRIMETHYLPHLOROGLUCINOL) [Suspect]
     Active Substance: PHLOROGLUCINOL\1,3,5-TRIMETHOXYBENZENE
     Indication: ABDOMINAL PAIN
     Dosage: 2 DF, TID (6 UG/LITRE QD)
     Route: 048
     Dates: start: 2017
  12. AMIKACIN. [Suspect]
     Active Substance: AMIKACIN
     Dosage: UNK
     Route: 042
     Dates: start: 20170421, end: 20170424
  13. AMLOR [Concomitant]
     Active Substance: AMLODIPINE BESYLATE
     Dosage: 1000 MG, QD
     Route: 048
  14. TIORFAN [Suspect]
     Active Substance: RACECADOTRIL
     Dosage: 200 MG, TID
     Route: 048
     Dates: start: 2017
  15. PRIVIGEN [Concomitant]
     Active Substance: HUMAN IMMUNOGLOBULIN G
     Indication: PRODUCT USED FOR UNKNOWN INDICATION
     Dosage: EACH TUESDAY
     Route: 065
     Dates: start: 20170404
  16. SOLU-MEDROL [Suspect]
     Active Substance: METHYLPREDNISOLONE SODIUM SUCCINATE
     Indication: PRODUCT USED FOR UNKNOWN INDICATION
     Dosage: 160 MG, QD
     Route: 042
     Dates: start: 20170329, end: 20170609
  17. SMOFKABIVEN [Suspect]
     Active Substance: AMINO ACIDS\DEXTROSE\ELECTROLYTES NOS\SOYBEAN OIL
     Indication: PARENTERAL NUTRITION
     Dosage: 80 ML, UNK (PER HOUR)
     Route: 042
     Dates: start: 2017, end: 2017
  18. AMIKACIN. [Suspect]
     Active Substance: AMIKACIN
     Indication: PRODUCT USED FOR UNKNOWN INDICATION
     Dosage: UNK
     Route: 042
     Dates: start: 20170403
  19. TIENAM [Suspect]
     Active Substance: CILASTATIN SODIUM\IMIPENEM
     Indication: PRODUCT USED FOR UNKNOWN INDICATION
     Dosage: 500 MG, Q8H
     Route: 042
     Dates: start: 201703, end: 20170403
  20. ZYVOXID [Suspect]
     Active Substance: LINEZOLID
     Indication: PRODUCT USED FOR UNKNOWN INDICATION
     Dosage: 600 MG, Q12H
     Route: 042
     Dates: start: 201703, end: 20170430
  21. MAGNESIUM ALGINATE [Suspect]
     Active Substance: MAGNESIUM ALGINATE
     Indication: GASTROOESOPHAGEAL REFLUX DISEASE
     Dosage: 1 ?G/L, Q8H
     Route: 048
     Dates: start: 2017
  22. DAKTARIN [Concomitant]
     Active Substance: MICONAZOLE NITRATE
     Indication: PRODUCT USED FOR UNKNOWN INDICATION
     Dosage: UNK (EACH TUESDAY)
     Route: 065
     Dates: start: 20170404
  23. CELLCEPT [Suspect]
     Active Substance: MYCOPHENOLATE MOFETIL\MYCOPHENOLATE MOFETIL HYDROCHLORIDE
     Dosage: 2000 MG, QD
     Route: 048
     Dates: start: 2017
  24. CYMEVAN [Suspect]
     Active Substance: GANCICLOVIR
     Indication: PROPHYLAXIS
     Dosage: UNK
     Route: 042
     Dates: start: 20170330, end: 20170504
  25. CANCIDAS [Suspect]
     Active Substance: CASPOFUNGIN ACETATE
     Indication: FUNGAL INFECTION
     Dosage: 70 MG, QD (PER 24 HR)
     Route: 042
     Dates: start: 201703
  26. BACTRIM [Suspect]
     Active Substance: SULFAMETHOXAZOLE\TRIMETHOPRIM
     Indication: PNEUMOCYSTIS JIROVECII PNEUMONIA
     Dosage: 800 MG, QD
     Route: 048
     Dates: start: 201703, end: 20170326
  27. SPASFON (PHLOROGLUCINOL;TRIMETHYLPHLOROGLUCINOL) [Suspect]
     Active Substance: PHLOROGLUCINOL\1,3,5-TRIMETHOXYBENZENE
     Indication: PAIN
     Dosage: 2 DF, QD (2 UG/LITRE)
     Route: 048
     Dates: start: 2017
  28. KEPPRA [Suspect]
     Active Substance: LEVETIRACETAM
     Indication: SEIZURE
     Dosage: 1000 MG, QD
     Route: 048
     Dates: start: 20170422
  29. YDRALBUM [Concomitant]
     Active Substance: ALBUMIN HUMAN
     Indication: PRODUCT USED FOR UNKNOWN INDICATION
     Dosage: UNK UNK, PRN
     Route: 065
  30. BISOPROLOL [Concomitant]
     Active Substance: BISOPROLOL
     Indication: PROPHYLAXIS
  31. NEORAL [Suspect]
     Active Substance: CYCLOSPORINE
     Indication: PROPHYLAXIS AGAINST TRANSPLANT REJECTION
     Dosage: 40 MG, BID
     Route: 065
     Dates: start: 2017
  32. GAVISCON [Suspect]
     Active Substance: ALUMINUM HYDROXIDE\MAGNESIUM CARBONATE
     Indication: GASTROOESOPHAGEAL REFLUX DISEASE
     Dosage: 2 DF, QD (3 UG/LITRE QD)
     Route: 048
     Dates: start: 2017
  33. EUPRESSYL [Suspect]
     Active Substance: URAPIDIL
     Indication: HYPERTENSION
     Dosage: 2 MG, UNK (PER HOUR)
     Route: 042
     Dates: start: 201703, end: 20170530
  34. SODIUM ALGINATE [Suspect]
     Active Substance: SODIUM ALGINATE
     Indication: GASTROOESOPHAGEAL REFLUX DISEASE
     Dosage: 1 ?G/L, Q8H
     Route: 048
     Dates: start: 2017
  35. ZERBAXA [Suspect]
     Active Substance: CEFTOLOZANE SULFATE\TAZOBACTAM SODIUM
     Indication: CELLULITIS
     Dosage: 3 G, QD
     Route: 042
     Dates: start: 20170331
  36. KEPPRA [Suspect]
     Active Substance: LEVETIRACETAM
     Indication: EPILEPSY
  37. BISOPROLOL [Concomitant]
     Active Substance: BISOPROLOL
     Indication: PRODUCT USED FOR UNKNOWN INDICATION
     Dosage: UNK
     Route: 065
     Dates: start: 20170331
  38. RAMIPRIL. [Concomitant]
     Active Substance: RAMIPRIL
     Indication: PROPHYLAXIS AGAINST TRANSPLANT REJECTION
     Dosage: 2000 MG, QD
     Route: 048
     Dates: start: 20170331
  39. TEGRETOL [Suspect]
     Active Substance: CARBAMAZEPINE
     Indication: EPILEPSY
     Dosage: 500 MG, BID
     Route: 048
     Dates: start: 20170422
  40. DITROPAN [Suspect]
     Active Substance: OXYBUTYNIN CHLORIDE
     Dosage: 15 MG, QD
     Route: 048
     Dates: start: 2017, end: 20170509
  41. AMIKACIN. [Suspect]
     Active Substance: AMIKACIN
     Dosage: UNK
     Route: 042
     Dates: start: 20170526, end: 20170529
  42. AMIKACIN. [Suspect]
     Active Substance: AMIKACIN
     Dosage: UNK
     Route: 042
     Dates: start: 20170607
  43. AMLOR [Concomitant]
     Active Substance: AMLODIPINE BESYLATE
     Indication: EPILEPSY
     Dosage: 1000 MG, QD
     Route: 048
     Dates: start: 20170526
  44. NEORAL [Suspect]
     Active Substance: CYCLOSPORINE
     Dosage: 80 MG, QD
     Route: 048
     Dates: start: 2017
  45. CELLCEPT [Suspect]
     Active Substance: MYCOPHENOLATE MOFETIL\MYCOPHENOLATE MOFETIL HYDROCHLORIDE
     Indication: PROPHYLAXIS AGAINST TRANSPLANT REJECTION
     Dosage: 1000 MG, BID
     Route: 048
     Dates: start: 20170329
  46. ZELITREX [Suspect]
     Active Substance: VALACYCLOVIR HYDROCHLORIDE
     Indication: PROPHYLAXIS
     Dosage: UNK
     Route: 048
     Dates: start: 20170504
  47. TARGOCID [Concomitant]
     Active Substance: TEICOPLANIN
     Indication: PRODUCT USED FOR UNKNOWN INDICATION
     Dosage: UNK
     Route: 065

REACTIONS (4)
  - Amnesia [Not Recovered/Not Resolved]
  - Confusional state [Not Recovered/Not Resolved]
  - Pancytopenia [Recovered/Resolved]
  - Seizure [Recovered/Resolved]

NARRATIVE: CASE EVENT DATE: 20170329
